FAERS Safety Report 9387566 (Version 1)
Quarter: 2013Q3

REPORT INFORMATION
  Report Type: Spontaneous
  Country: GB (occurrence: GB)
  Receive Date: 20130708
  Receipt Date: 20130708
  Transmission Date: 20140515
  Serious: Yes (Life-Threatening, Hospitalization)
  Sender: FDA-Public Use
  Company Number: GB-JNJFOC-20130619547

PATIENT
  Age: 31 Year
  Sex: Female
  Weight: 53.98 kg

DRUGS (2)
  1. NORETHISTERONE [Suspect]
     Indication: PRODUCT USED FOR UNKNOWN INDICATION
     Route: 048
     Dates: start: 20120830, end: 20120910
  2. LAMOTRIGINE [Concomitant]
     Indication: EPILEPSY
     Dosage: STRENGTH- 50 MG
     Route: 065
     Dates: start: 200501

REACTIONS (5)
  - Jaundice [Recovered/Resolved]
  - Weight decreased [Recovered/Resolved]
  - Nausea [Recovered/Resolved]
  - Nasopharyngitis [Recovered/Resolved]
  - Pruritus [Recovered/Resolved]
